FAERS Safety Report 15712078 (Version 1)
Quarter: 2018Q4

REPORT INFORMATION
  Report Type: Spontaneous
  Country: FR (occurrence: FR)
  Receive Date: 20181212
  Receipt Date: 20181212
  Transmission Date: 20190205
  Serious: Yes (Hospitalization)
  Sender: FDA-Public Use
  Company Number: FR-TEVA-2018-FR-984581

PATIENT
  Age: 23 Year
  Sex: Male

DRUGS (9)
  1. PERINDOPRIL ARGININE [Concomitant]
     Active Substance: PERINDOPRIL ARGININE
     Dosage: 4 MILLIGRAM DAILY;
     Route: 048
     Dates: start: 201807
  2. BISOPROLOL BIOGARAN [Concomitant]
     Active Substance: BISOPROLOL FUMARATE
     Dosage: 1.25 MILLIGRAM DAILY;
     Route: 048
     Dates: start: 201807
  3. PANTOPRAZOLE ACTAVIS 40 MG, COMPRIM? GASTRO-R?SISTANT [Concomitant]
     Dosage: 40 MILLIGRAM DAILY;
     Route: 048
     Dates: start: 201807
  4. ATORVASTATINE CALCIQUE [Suspect]
     Active Substance: ATORVASTATIN CALCIUM
     Indication: MYOCARDIAL INFARCTION
     Dosage: 80 MILLIGRAM DAILY;
     Route: 048
     Dates: start: 20180716, end: 20181101
  5. PROCORALAN 5 MG, COMPRIM? PELLICUL? [Concomitant]
     Active Substance: IVABRADINE HYDROCHLORIDE
     Dosage: 10 MILLIGRAM DAILY;
     Route: 048
     Dates: start: 201807
  6. PREVISCAN 20 MG, COMPRIM? S?CABLE [Suspect]
     Active Substance: FLUINDIONE
     Indication: THROMBOSIS
     Dosage: 15 MILLIGRAM DAILY;
     Route: 048
     Dates: start: 20181020, end: 20181101
  7. EPLERENONE ARROW 25 MG, COMPRIM? PELLICUL? [Concomitant]
     Dosage: 25 MILLIGRAM DAILY;
     Route: 048
     Dates: start: 201807
  8. EZETIMIBE. [Concomitant]
     Active Substance: EZETIMIBE
     Dosage: 10 MILLIGRAM DAILY;
     Route: 048
     Dates: start: 201809
  9. PLAVIX [Concomitant]
     Active Substance: CLOPIDOGREL BISULFATE
     Dosage: 75 MILLIGRAM DAILY;
     Route: 048
     Dates: start: 201807

REACTIONS (1)
  - Pancreatitis acute [Recovered/Resolved]

NARRATIVE: CASE EVENT DATE: 20181102
